FAERS Safety Report 21929971 (Version 1)
Quarter: 2023Q1

REPORT INFORMATION
  Report Type: Spontaneous
  Country: CO (occurrence: CO)
  Receive Date: 20230131
  Receipt Date: 20230131
  Transmission Date: 20230417
  Serious: Yes (Other)
  Sender: FDA-Public Use
  Company Number: CO-AMGEN-COLSP2023012748

PATIENT
  Age: 47 Year
  Sex: Female

DRUGS (1)
  1. BLINCYTO [Suspect]
     Active Substance: BLINATUMOMAB
     Indication: B precursor type acute leukaemia
     Dosage: UNK
     Route: 065

REACTIONS (3)
  - Acute lymphocytic leukaemia refractory [Unknown]
  - COVID-19 [Recovered/Resolved]
  - Drug ineffective [Unknown]
